FAERS Safety Report 9408851 (Version 1)
Quarter: 2013Q3

REPORT INFORMATION
  Report Type: Spontaneous
  Country: US (occurrence: US)
  Receive Date: 20130719
  Receipt Date: 20130719
  Transmission Date: 20140515
  Serious: Yes (Other)
  Sender: FDA-Public Use
  Company Number: US-RANBAXY-2013US-71278

PATIENT
  Age: 70 Year
  Sex: Male

DRUGS (1)
  1. MINOCYCLINE [Suspect]
     Indication: RHEUMATOID ARTHRITIS
     Dosage: 100 MG BID
     Route: 048

REACTIONS (1)
  - Skin hyperpigmentation [Recovered/Resolved]
